FAERS Safety Report 7229657-7 (Version None)
Quarter: 2011Q1

REPORT INFORMATION
  Report Type: 
  Country: None (occurrence: None)
  Receive Date: 20110117
  Receipt Date: 20110106
  Transmission Date: 20110831
  Serious: Yes (Hospitalization, Disabling)
  Sender: FDA-Public Use
  Company Number: PHFR2011GB00645

PATIENT
  Age: 53 Year
  Sex: Female

DRUGS (4)
  1. VALSARTAN [Suspect]
     Dosage: 80 MG
     Dates: start: 20100517
  2. LEFLUNOMIDE [Concomitant]
  3. SIMVASTATIN [Concomitant]
  4. VALSARTAN [Suspect]
     Indication: HYPERTENSION
     Dosage: 40 MG, QD
     Dates: start: 20070420, end: 20100516

REACTIONS (3)
  - INFLAMMATORY MARKER INCREASED [None]
  - RHEUMATOID ARTHRITIS [None]
  - POLYARTHRITIS [None]
